FAERS Safety Report 20430130 (Version 1)
Quarter: 2022Q1

REPORT INFORMATION
  Report Type: Report from Study
  Country: FR (occurrence: FR)
  Receive Date: 20220204
  Receipt Date: 20220204
  Transmission Date: 20220424
  Serious: Yes (Life-Threatening, Hospitalization)
  Sender: FDA-Public Use
  Company Number: None

PATIENT

DRUGS (9)
  1. PEGASPARGASE [Suspect]
     Active Substance: PEGASPARGASE
     Indication: Acute lymphocytic leukaemia
     Dosage: 3475 IU   D12
     Dates: start: 20200120, end: 20200120
  2. TN  UNSPECIFIED [Concomitant]
     Indication: Acute lymphocytic leukaemia
     Dosage: 2 MG   D8, D15, D22 AND D29
     Route: 042
     Dates: start: 20200116, end: 20200206
  3. TN  UNSPECIFIED [Concomitant]
     Indication: Acute lymphocytic leukaemia
     Dosage: 42 MG   D13 D15 D22 AND D29
     Route: 042
     Dates: start: 20200121, end: 20200206
  4. TN UNSPECIFIED [Concomitant]
     Indication: Acute lymphocytic leukaemia
     Dosage: 85 MG  D12 TO D29
     Dates: start: 20200120, end: 20200205
  5. TN UNSPECIFIED [Concomitant]
     Dosage: 8.5 MG  D8 TO D12
     Route: 042
     Dates: start: 20200115, end: 20200220
  6. TN UNSPECIFIED [Concomitant]
     Indication: Acute lymphocytic leukaemia
     Dosage: 12 MG, ONE DOSE  D3
     Route: 037
     Dates: start: 20200121, end: 20200121
  7. TN  UNSPECIFIED [Concomitant]
     Indication: Acute lymphocytic leukaemia
     Dosage: 15 MG, ONE DOSE  D3
     Route: 037
     Dates: start: 20200121, end: 20200121
  8. TN  UNSPECIFIED [Concomitant]
     Indication: Acute lymphocytic leukaemia
     Dosage: 30 MG, ONE DOSE  D3
     Route: 037
     Dates: start: 20200121, end: 20200121
  9. LOVENOX [Concomitant]
     Active Substance: ENOXAPARIN SODIUM
     Indication: Deep vein thrombosis
     Dosage: 4000 IU, QD
     Route: 058
     Dates: start: 20200218

REACTIONS (7)
  - Rectal haemorrhage [Recovered/Resolved]
  - Disseminated intravascular coagulation [Recovered/Resolved]
  - Cerebral venous thrombosis [Recovering/Resolving]
  - Hepatitis cholestatic [Recovering/Resolving]
  - Jaundice [Recovered/Resolved]
  - Hepatomegaly [Recovered/Resolved]
  - Hypofibrinogenaemia [Not Recovered/Not Resolved]

NARRATIVE: CASE EVENT DATE: 20200127
